FAERS Safety Report 5550584-5 (Version None)
Quarter: 2007Q4

REPORT INFORMATION
  Report Type: 
  Country: None (occurrence: None)
  Receive Date: 20071212
  Receipt Date: 20071129
  Transmission Date: 20080405
  Serious: Yes (Life-Threatening, Hospitalization)
  Sender: FDA-Public Use
  Company Number: US-ELI_LILLY_AND_COMPANY-US200710006846

PATIENT
  Sex: Male
  Weight: 79.3 kg

DRUGS (10)
  1. PEMETREXED [Suspect]
     Indication: SQUAMOUS CELL CARCINOMA
     Dosage: 500 MG/M2, OTHER
     Route: 042
     Dates: start: 20071011
  2. CISPLATIN [Suspect]
     Indication: SQUAMOUS CELL CARCINOMA
     Dosage: 75 MG/M2, OTHER
     Route: 042
     Dates: start: 20071011
  3. FOLIC ACID [Concomitant]
     Dosage: 400 UG, DAILY (1/D)
     Route: 048
     Dates: start: 20071004
  4. VITAMIN B-12 [Concomitant]
     Dosage: 1000 UG, OTHER
     Route: 030
     Dates: start: 20071004
  5. DEXAMETHASONE TAB [Concomitant]
     Dosage: 4 MG, 2/D
     Route: 048
     Dates: start: 20071004
  6. VERAPAMIL HCL [Concomitant]
     Indication: HYPERTENSION
     Dosage: 340 MG/KG, UNK
     Dates: start: 19950101
  7. PRILOSEC [Concomitant]
     Indication: GASTROOESOPHAGEAL REFLUX DISEASE
     Dosage: 40 MG, UNK
     Dates: start: 19890101
  8. AMBIEN [Concomitant]
     Indication: INSOMNIA
     Dosage: 5 MG, UNK
     Dates: start: 19980101
  9. TRAZODONE HYDROCHLORIDE [Concomitant]
     Indication: DEPRESSION
     Dosage: 25 MG, UNK
     Dates: start: 20060101
  10. ASPIRIN [Concomitant]
     Dosage: 81 MG, UNK

REACTIONS (1)
  - LARYNGEAL OEDEMA [None]
